FAERS Safety Report 9889257 (Version 2)
Quarter: 2014Q1

REPORT INFORMATION
  Report Type: Spontaneous
  Country: US (occurrence: US)
  Receive Date: 20140211
  Receipt Date: 20140219
  Transmission Date: 20141002
  Serious: Yes (Other)
  Sender: FDA-Public Use
  Company Number: US-PURDUE-USA-2014-0111049

PATIENT
  Age: 47 Year
  Sex: Female

DRUGS (1)
  1. OXYCONTIN (NDA 22-272) [Suspect]
     Indication: INTERVERTEBRAL DISC DEGENERATION
     Dosage: 20 MG, TID
     Route: 048
     Dates: start: 1990

REACTIONS (7)
  - Suicidal ideation [Recovered/Resolved]
  - Intervertebral disc protrusion [Recovered/Resolved]
  - Ligament rupture [Recovered/Resolved]
  - Fall [Recovered/Resolved]
  - Ankle fracture [Recovered/Resolved]
  - Carpal tunnel syndrome [Recovered/Resolved]
  - Pain [Not Recovered/Not Resolved]
